FAERS Safety Report 6401591-1 (Version None)
Quarter: 2009Q4

REPORT INFORMATION
  Report Type: 
  Country: None (occurrence: None)
  Receive Date: 20091009
  Receipt Date: 20091009
  Transmission Date: 20100525
  Serious: Yes (Hospitalization)
  Sender: FDA-Public Use
  Company Number: None

PATIENT
  Age: 46 Year
  Sex: Female
  Weight: 46.4 kg

DRUGS (15)
  1. DOXORUBICIN HCL [Suspect]
     Indication: BREAST CANCER
     Dosage: 60MG/M2 EVERY 3 WEEKS IV
     Route: 042
     Dates: start: 20090624, end: 20090925
  2. CYCLOPHOSPHAMIDE [Suspect]
     Dosage: 600MG/M2 EVERY 3 WEEKS IV
     Route: 042
     Dates: start: 20090624, end: 20090925
  3. IBUPROFEN [Concomitant]
  4. ACETAMINOPHEN [Concomitant]
  5. DIPHENHYDRAMINE -BENADRYL- [Concomitant]
  6. SYSTANE EYE DROPS [Concomitant]
  7. ATIVAN [Concomitant]
  8. ZOFRAN [Concomitant]
  9. DEXEMETHASONE -DECADRON- [Concomitant]
  10. PROCHLORPERAZINE -COMPAZINE- [Concomitant]
  11. APREITANT -EMEND- [Concomitant]
  12. COLACE -DOCUSATE SODIUM- [Concomitant]
  13. MAGIC MOUTHWASH [Concomitant]
  14. NORMAL SALINE MOUTHWASH [Concomitant]
  15. CEFTAZIDIME [Concomitant]

REACTIONS (5)
  - ANAEMIA [None]
  - FATIGUE [None]
  - FEBRILE NEUTROPENIA [None]
  - MUSCULAR WEAKNESS [None]
  - WHITE BLOOD CELL COUNT DECREASED [None]
